FAERS Safety Report 18459277 (Version 3)
Quarter: 2021Q3

REPORT INFORMATION
  Report Type: Spontaneous
  Country: US (occurrence: US)
  Receive Date: 20201103
  Receipt Date: 20210728
  Transmission Date: 20211014
  Serious: Yes (Other)
  Sender: FDA-Public Use
  Company Number: US-PFIZER INC-2020425119

PATIENT
  Age: 52 Year
  Sex: Male

DRUGS (9)
  1. INLYTA [Suspect]
     Active Substance: AXITINIB
     Indication: RENAL CANCER
     Dosage: 5 MG, 2X/DAY
     Route: 048
  2. INLYTA [Suspect]
     Active Substance: AXITINIB
     Dosage: 7 MG, 2X/DAY
     Route: 048
  3. INLYTA [Suspect]
     Active Substance: AXITINIB
     Dosage: 5 MG, 2X/DAY
     Route: 048
  4. ASTRAGALUS ROOT [Concomitant]
     Active Substance: HERBALS
     Dosage: UNK (100% POWDER)
  5. VITAMIN D [COLECALCIFEROL] [Concomitant]
     Active Substance: CHOLECALCIFEROL
     Dosage: UNK (VITAMIN D? 400 10 MCG TABLET)
  6. INLYTA [Suspect]
     Active Substance: AXITINIB
     Dosage: 5 MG, 2X/DAY (TWO TIMES A DAY)
     Route: 048
     Dates: start: 20200715
  7. CONCERTA [Concomitant]
     Active Substance: METHYLPHENIDATE HYDROCHLORIDE
     Dosage: 18 MG TAB ER 24,UNK
  8. FISH OIL [Concomitant]
     Active Substance: FISH OIL
     Dosage: 100?160 MG,UNK
  9. GABAPENTIN. [Concomitant]
     Active Substance: GABAPENTIN
     Dosage: (100% POWDER) UNK

REACTIONS (6)
  - Dysphonia [Unknown]
  - Hypertension [Unknown]
  - Hypoaesthesia [Unknown]
  - Joint swelling [Unknown]
  - Paraesthesia [Unknown]
  - Product dose omission issue [Unknown]
